FAERS Safety Report 5587929-6 (Version None)
Quarter: 2008Q1

REPORT INFORMATION
  Report Type: 
  Country: None (occurrence: None)
  Receive Date: 20080111
  Receipt Date: 20070503
  Transmission Date: 20080703
  Serious: No
  Sender: FDA-Public Use
  Company Number: US-KINGPHARMUSA00001-K200700555

PATIENT

DRUGS (6)
  1. CORGARD [Suspect]
     Indication: HYPERTENSION
     Dosage: 40 MG, QD
     Route: 048
     Dates: start: 20070405
  2. CORGARD [Suspect]
     Dosage: 20 MG, QD
     Route: 048
  3. MICARDIS [Concomitant]
  4. PRAVACHOL [Concomitant]
  5. PROCARDIA [Concomitant]
  6. UNSPECIFIED MEDICATIONS [Concomitant]

REACTIONS (2)
  - PARAESTHESIA [None]
  - PERIPHERAL COLDNESS [None]
